FAERS Safety Report 11926382 (Version 2)
Quarter: 2016Q1

REPORT INFORMATION
  Report Type: Spontaneous
  Country: US (occurrence: US)
  Receive Date: 20160119
  Receipt Date: 20160204
  Transmission Date: 20160526
  Serious: No
  Sender: FDA-Public Use
  Company Number: US-BAYER-2016-010341

PATIENT
  Age: 24 Year
  Sex: Male
  Weight: 114.29 kg

DRUGS (1)
  1. ALEVE [Suspect]
     Active Substance: NAPROXEN SODIUM
     Indication: HEADACHE
     Dosage: 1 DF, ONCE
     Route: 048
     Dates: start: 20150510, end: 20150510

REACTIONS (18)
  - Skin disorder [Recovered/Resolved]
  - Pruritus [None]
  - Pruritus genital [None]
  - Genital rash [None]
  - Lip swelling [None]
  - Fungal infection [Recovered/Resolved]
  - Urticaria [Recovered/Resolved]
  - Pruritus generalised [Recovered/Resolved]
  - Drug hypersensitivity [None]
  - Rash generalised [Recovered/Resolved]
  - Hypertension [Unknown]
  - Swelling face [None]
  - Rash erythematous [None]
  - Peripheral swelling [None]
  - Eyelid oedema [None]
  - Rash [None]
  - Pyrexia [None]
  - Tinea cruris [None]

NARRATIVE: CASE EVENT DATE: 201505
